FAERS Safety Report 5968962-9 (Version None)
Quarter: 2008Q4

REPORT INFORMATION
  Report Type: 
  Country: None (occurrence: None)
  Receive Date: 20081125
  Receipt Date: 20081125
  Transmission Date: 20090506
  Serious: Yes (Other)
  Sender: FDA-Public Use
  Company Number: None

PATIENT
  Sex: Female
  Weight: 64.8644 kg

DRUGS (2)
  1. INNOPRAN XL [Suspect]
     Indication: HYPERTENSION
     Dosage: 120MG DAILY P.O.
     Route: 048
     Dates: start: 20070101
  2. PROPRANOLOL HCL [Suspect]
     Indication: HYPERTENSION
     Dosage: 120MG DAILY P.O.
     Route: 048
     Dates: start: 20070101

REACTIONS (7)
  - CHEST DISCOMFORT [None]
  - CHEST PAIN [None]
  - DRUG INTOLERANCE [None]
  - DYSPNOEA [None]
  - NAUSEA [None]
  - PALPITATIONS [None]
  - PRODUCT QUALITY ISSUE [None]
